FAERS Safety Report 5283640-X (Version None)
Quarter: 2007Q2

REPORT INFORMATION
  Report Type: 
  Country: None (occurrence: None)
  Receive Date: 20070402
  Receipt Date: 20070320
  Transmission Date: 20071010
  Serious: Yes (Other)
  Sender: FDA-Public Use
  Company Number: PHBS2007IN05060

PATIENT
  Age: 8 Year
  Sex: Male
  Weight: 35 kg

DRUGS (4)
  1. METHYLPHENIDATE HCL [Suspect]
     Indication: ATTENTION DEFICIT/HYPERACTIVITY DISORDER
     Dosage: 10 MG/DAY IN TWO DIVIDED DOSES
     Route: 065
  2. METHYLPHENIDATE HCL [Suspect]
     Dosage: 20 MG/DAY IN TWO DIVIDED DOSES
     Route: 065
  3. METHYLPHENIDATE HCL [Suspect]
     Dosage: 15 MG/DAY
     Route: 065
  4. CLONIDINE [Suspect]
     Indication: ATTENTION DEFICIT/HYPERACTIVITY DISORDER
     Dosage: 100 MCG/DAY IN THREE DIVIDED DOSES
     Route: 065

REACTIONS (6)
  - AGGRESSION [None]
  - ATTENTION DEFICIT/HYPERACTIVITY DISORDER [None]
  - CONDITION AGGRAVATED [None]
  - DECREASED APPETITE [None]
  - DRUG INTERACTION [None]
  - INSOMNIA [None]
